FAERS Safety Report 9360577 (Version 3)
Quarter: 2013Q3

REPORT INFORMATION
  Report Type: Report from Study
  Country: US (occurrence: US)
  Receive Date: 20130621
  Receipt Date: 20130805
  Transmission Date: 20140515
  Serious: Yes (Hospitalization)
  Sender: FDA-Public Use
  Company Number: PHEH2013US013174

PATIENT
  Sex: Female

DRUGS (3)
  1. ILARIS [Suspect]
     Dosage: 150 MG, EVERY 28 DAYS
     Route: 058
  2. ILARIS [Suspect]
     Dosage: UNK UKN, UNK
     Route: 058
     Dates: start: 20130318
  3. ILARIS [Suspect]
     Dosage: UNK UKN, UNK
     Route: 058
     Dates: start: 20130429

REACTIONS (2)
  - Pain [Unknown]
  - Drug half-life reduced [Unknown]
